FAERS Safety Report 5423872-0 (Version None)
Quarter: 2007Q3

REPORT INFORMATION
  Report Type: 
  Country: None (occurrence: None)
  Receive Date: 20070823
  Receipt Date: 20070813
  Transmission Date: 20080115
  Serious: Yes (Other)
  Sender: FDA-Public Use
  Company Number: GB-ROCHE-512053

PATIENT
  Age: 37 Year
  Sex: Female
  Weight: 98.9 kg

DRUGS (1)
  1. XENICAL [Suspect]
     Indication: OBESITY
     Route: 048
     Dates: start: 20070703

REACTIONS (3)
  - FALL [None]
  - JOINT SPRAIN [None]
  - JOINT SWELLING [None]
